FAERS Safety Report 6228622-6 (Version None)
Quarter: 2009Q2

REPORT INFORMATION
  Report Type: 
  Country: None (occurrence: None)
  Receive Date: 20090612
  Receipt Date: 20090605
  Transmission Date: 20091009
  Serious: Yes (Other)
  Sender: FDA-Public Use
  Company Number: FR-MERCK-0810FRA00063

PATIENT
  Age: 50 Year
  Sex: Female
  Weight: 73 kg

DRUGS (4)
  1. ISENTRESS [Suspect]
     Indication: HIV INFECTION
     Route: 048
     Dates: start: 20080506, end: 20080822
  2. ISENTRESS [Suspect]
     Route: 048
     Dates: start: 20080911, end: 20080915
  3. DIDANOSINE [Suspect]
     Indication: HIV INFECTION
     Route: 048
     Dates: start: 20060822
  4. LOPINAVIR AND RITONAVIR [Suspect]
     Indication: HIV INFECTION
     Route: 048
     Dates: start: 20060822

REACTIONS (2)
  - FACE OEDEMA [None]
  - THROMBOCYTOPENIA [None]
